FAERS Safety Report 20055031 (Version 1)
Quarter: 2021Q4

REPORT INFORMATION
  Report Type: Spontaneous
  Country: US (occurrence: None)
  Receive Date: 20211110
  Receipt Date: 20211110
  Transmission Date: 20220303
  Serious: No
  Sender: FDA-Public Use
  Company Number: None

PATIENT
  Age: 58 Year
  Sex: Female

DRUGS (1)
  1. AUBAGIO [Suspect]
     Active Substance: TERIFLUNOMIDE
     Dosage: FREQUENCY : DAILY;?
     Route: 047
     Dates: start: 202110

REACTIONS (4)
  - Neuropathy peripheral [None]
  - Eye irritation [None]
  - Multiple sclerosis relapse [None]
  - Therapy cessation [None]

NARRATIVE: CASE EVENT DATE: 20211023
